FAERS Safety Report 8987720 (Version 2)
Quarter: 2013Q1

REPORT INFORMATION
  Report Type: Spontaneous
  Country: AU (occurrence: AU)
  Receive Date: 20121227
  Receipt Date: 20130117
  Transmission Date: 20140127
  Serious: Yes (Hospitalization)
  Sender: FDA-Public Use
  Company Number: AU-BAYER-2012-132481

PATIENT
  Age: 17 Year
  Sex: Female

DRUGS (3)
  1. YAZ [Suspect]
     Indication: ACNE
     Dosage: UNK
     Route: 048
     Dates: start: 20120703, end: 20121030
  2. BRENDA [Suspect]
     Indication: ACNE
     Dosage: UNK
     Dates: start: 20121117, end: 20121206
  3. BRENDA [Suspect]
     Indication: POLYCYSTIC OVARIES

REACTIONS (4)
  - Vomiting [Recovering/Resolving]
  - Dehydration [Recovered/Resolved]
  - Headache [Recovered/Resolved]
  - Drug ineffective [None]
